FAERS Safety Report 8446963-9 (Version None)
Quarter: 2012Q2

REPORT INFORMATION
  Report Type: 
  Country: None (occurrence: None)
  Receive Date: 20120613
  Receipt Date: 20120613
  Transmission Date: 20120825
  Serious: Yes (Other)
  Sender: FDA-Public Use
  Company Number: None

PATIENT
  Age: 27 Year
  Sex: Female
  Weight: 68.0396 kg

DRUGS (1)
  1. REMICADE [Suspect]

REACTIONS (10)
  - EYE INFECTION [None]
  - HERPES ZOSTER [None]
  - SCAB [None]
  - IMPETIGO [None]
  - ACNE [None]
  - ERYTHEMA [None]
  - RASH [None]
  - EAR DISORDER [None]
  - PRURITUS [None]
  - SECRETION DISCHARGE [None]
